FAERS Safety Report 9603096 (Version 3)
Quarter: 2014Q1

REPORT INFORMATION
  Report Type: Spontaneous
  Country: FR (occurrence: FR)
  Receive Date: 20131007
  Receipt Date: 20140317
  Transmission Date: 20141002
  Serious: Yes (Hospitalization)
  Sender: FDA-Public Use
  Company Number: FR-GLAXOSMITHKLINE-B0925472B

PATIENT
  Age: 39 Year
  Sex: Female
  Weight: 86 kg

DRUGS (4)
  1. LAMICTAL [Suspect]
     Indication: EPILEPSY
     Route: 048
     Dates: start: 20130211
  2. DEPAKINE CHRONO [Suspect]
     Indication: EPILEPSY
     Dosage: 750MG PER DAY
     Route: 048
     Dates: end: 201305
  3. INSULIN [Concomitant]
     Indication: GESTATIONAL DIABETES
     Route: 065
     Dates: start: 2013
  4. SPECIAFOLDINE [Concomitant]
     Indication: VITAMIN SUPPLEMENTATION
     Dosage: 5MG PER DAY
     Route: 065
     Dates: start: 201305, end: 201312

REACTIONS (7)
  - Gestational diabetes [Recovering/Resolving]
  - Nausea [Recovering/Resolving]
  - Vomiting [Recovering/Resolving]
  - Weight decreased [Recovering/Resolving]
  - Hypertension [Unknown]
  - Epilepsy [Recovered/Resolved]
  - Exposure during pregnancy [Unknown]
